FAERS Safety Report 7541337-7 (Version None)
Quarter: 2011Q2

REPORT INFORMATION
  Report Type: 
  Country: None (occurrence: None)
  Receive Date: 20110612
  Receipt Date: 20110531
  Transmission Date: 20111010
  Serious: Yes (Hospitalization)
  Sender: FDA-Public Use
  Company Number: JP-ELI_LILLY_AND_COMPANY-JP201106000739

PATIENT
  Age: 36 Year
  Sex: Male

DRUGS (2)
  1. ZYPREXA [Suspect]
     Dosage: 2.5 MG, QD
     Route: 048
  2. ZYPREXA [Suspect]
     Dosage: 5 MG, QD
     Route: 048

REACTIONS (1)
  - HYPOKALAEMIA [None]
